FAERS Safety Report 9821569 (Version 2)
Quarter: 2014Q1

REPORT INFORMATION
  Report Type: Spontaneous
  Country: US (occurrence: US)
  Receive Date: 20140116
  Receipt Date: 20140210
  Transmission Date: 20141002
  Serious: No
  Sender: FDA-Public Use
  Company Number: US-PFIZER INC-2014012383

PATIENT
  Age: 66 Year
  Sex: Female

DRUGS (4)
  1. MEDROL [Suspect]
     Dosage: UNK
  2. TESSALON [Suspect]
     Dosage: UNK
  3. AMPICILLIN [Suspect]
     Dosage: UNK
  4. CODEINE [Suspect]
     Dosage: UNK

REACTIONS (1)
  - Drug hypersensitivity [Unknown]
